FAERS Safety Report 11640057 (Version 2)
Quarter: 2015Q4

REPORT INFORMATION
  Report Type: Spontaneous
  Country: US (occurrence: US)
  Receive Date: 20151019
  Receipt Date: 20151023
  Transmission Date: 20160304
  Serious: No
  Sender: FDA-Public Use
  Company Number: US-PFIZER INC-2015350904

PATIENT
  Age: 40 Year
  Sex: Female
  Weight: 57 kg

DRUGS (2)
  1. XANAX [Suspect]
     Active Substance: ALPRAZOLAM
     Indication: INSOMNIA
     Dosage: 2 MG, 1X/DAY
     Route: 048
     Dates: start: 2009
  2. VITAMIN D [Concomitant]
     Active Substance: CHOLECALCIFEROL
     Dosage: UNK

REACTIONS (7)
  - Pain [Unknown]
  - Thyroid disorder [Unknown]
  - Activities of daily living impaired [Unknown]
  - Headache [Not Recovered/Not Resolved]
  - Drug withdrawal syndrome [Unknown]
  - Burning sensation [Unknown]
  - Depersonalisation [Unknown]

NARRATIVE: CASE EVENT DATE: 201506
